FAERS Safety Report 6651241-4 (Version None)
Quarter: 2010Q1

REPORT INFORMATION
  Report Type: 
  Country: None (occurrence: None)
  Receive Date: 20100325
  Receipt Date: 20100315
  Transmission Date: 20100710
  Serious: Yes (Other)
  Sender: FDA-Public Use
  Company Number: US-AMGEN-QUU389186

PATIENT
  Sex: Female
  Weight: 80.22 kg

DRUGS (11)
  1. NPLATE [Suspect]
     Indication: IDIOPATHIC THROMBOCYTOPENIC PURPURA
     Route: 058
     Dates: start: 20050620, end: 20100127
  2. IMMU-G [Concomitant]
     Dates: start: 20040101
  3. STARLIX [Concomitant]
     Dates: start: 20080901
  4. MAGNESIUM OXIDE [Concomitant]
     Dates: start: 20050101
  5. CENTRUM SILVER [Concomitant]
     Dates: start: 20000101
  6. LEVEMIR [Concomitant]
     Dates: start: 20080901
  7. LOTREL [Concomitant]
     Dates: start: 20050501
  8. COREG [Concomitant]
     Dates: start: 20050501
  9. ZOCOR [Concomitant]
     Dates: start: 20090901
  10. SYNTHROID [Concomitant]
     Dates: start: 20070201
  11. INSULIN [Concomitant]

REACTIONS (5)
  - CONTUSION [None]
  - EPISTAXIS [None]
  - PETECHIAE [None]
  - THERAPEUTIC RESPONSE DECREASED [None]
  - THROMBOCYTOSIS [None]
